FAERS Safety Report 16292239 (Version 1)
Quarter: 2019Q2

REPORT INFORMATION
  Report Type: Spontaneous
  Country: US (occurrence: US)
  Receive Date: 20190509
  Receipt Date: 20190509
  Transmission Date: 20190711
  Serious: No
  Sender: FDA-Public Use
  Company Number: US-BAUSCH-BL-2019-012569

PATIENT
  Age: 19 Year
  Sex: Female
  Weight: 56.75 kg

DRUGS (2)
  1. LUMIFY [Suspect]
     Active Substance: BRIMONIDINE TARTRATE
     Indication: OCULAR HYPERAEMIA
     Dosage: ABOUT 1-2 MONTHS AGO
     Route: 047
     Dates: start: 2019, end: 2019
  2. LUMIFY [Suspect]
     Active Substance: BRIMONIDINE TARTRATE
     Dosage: ABOUT 4-5 DROPS INTO THE LEFT EYE
     Route: 047
     Dates: start: 201904, end: 201904

REACTIONS (2)
  - Miosis [Recovering/Resolving]
  - Extra dose administered [Unknown]

NARRATIVE: CASE EVENT DATE: 2019
